FAERS Safety Report 6453249-0 (Version None)
Quarter: 2009Q4

REPORT INFORMATION
  Report Type: 
  Country: None (occurrence: None)
  Receive Date: 20091124
  Receipt Date: 20091113
  Transmission Date: 20100525
  Serious: Yes (Death, Life-Threatening)
  Sender: FDA-Public Use
  Company Number: AR-PFIZER INC-2007097344

PATIENT
  Age: 60 Year
  Sex: Male
  Weight: 76 kg

DRUGS (4)
  1. SUNITINIB MALATE [Suspect]
     Indication: RENAL CELL CARCINOMA
     Dosage: 50 MG, 1X/DAY
     Route: 048
     Dates: start: 20060628, end: 20071114
  2. ENALAPRIL [Concomitant]
     Route: 048
     Dates: start: 20010101
  3. ATENOLOL [Concomitant]
     Route: 048
     Dates: start: 20010101
  4. PANTOPRAZOL [Concomitant]
     Route: 048
     Dates: start: 20061201

REACTIONS (1)
  - HAEMORRHAGE [None]
